FAERS Safety Report 6259122-5 (Version None)
Quarter: 2009Q3

REPORT INFORMATION
  Report Type: 
  Country: None (occurrence: None)
  Receive Date: 20090707
  Receipt Date: 20090626
  Transmission Date: 20100115
  Serious: Yes (Other)
  Sender: FDA-Public Use
  Company Number: US-ROCHE-621712

PATIENT
  Sex: Male

DRUGS (3)
  1. ACCUTANE [Suspect]
     Indication: ACNE
     Dosage: THE PATIENT HAD PRESCRIPTION ON 24 OCT 2000 BUT HE STARTED ON 08 FEB 2001, 40 MG DAILY.
     Route: 065
     Dates: start: 20010208, end: 20010418
  2. ACCUTANE [Suspect]
     Route: 065
     Dates: start: 20010426, end: 20010622
  3. ACCUTANE [Suspect]
     Route: 065
     Dates: start: 20010622, end: 20010701

REACTIONS (10)
  - COLITIS ULCERATIVE [None]
  - CROHN'S DISEASE [None]
  - DIARRHOEA [None]
  - DRY SKIN [None]
  - EMOTIONAL DISTRESS [None]
  - INFLAMMATORY BOWEL DISEASE [None]
  - INJURY [None]
  - INTESTINAL HAEMORRHAGE [None]
  - PELVIC VENOUS THROMBOSIS [None]
  - RECTAL HAEMORRHAGE [None]
